FAERS Safety Report 5940407-4 (Version None)
Quarter: 2008Q4

REPORT INFORMATION
  Report Type: 
  Country: None (occurrence: None)
  Receive Date: 20081104
  Receipt Date: 20081024
  Transmission Date: 20090506
  Serious: Yes (Other)
  Sender: FDA-Public Use
  Company Number: US-TYCO HEALTHCARE/MALLINCKRODT-T200801744

PATIENT

DRUGS (2)
  1. SODIUM IODIDE I 131 [Suspect]
     Indication: RADIOACTIVE IODINE THERAPY
     Dosage: 7 MCI, UNK
     Route: 048
  2. SODIUM IODIDE I 131 [Suspect]
     Dosage: 15.1 MCI, UNK
     Route: 048

REACTIONS (9)
  - ACUTE PROMYELOCYTIC LEUKAEMIA [None]
  - BASEDOW'S DISEASE [None]
  - COUGH [None]
  - DIARRHOEA [None]
  - ECCHYMOSIS [None]
  - FATIGUE [None]
  - HYPOTHYROIDISM [None]
  - INSOMNIA [None]
  - THROMBOCYTOPENIA [None]
